FAERS Safety Report 23190209 (Version 1)
Quarter: 2023Q4

REPORT INFORMATION
  Report Type: Spontaneous
  Country: ES (occurrence: ES)
  Receive Date: 20231116
  Receipt Date: 20231116
  Transmission Date: 20240110
  Serious: Yes (Other)
  Sender: FDA-Public Use
  Company Number: ES-PFIZER INC-202300349261

PATIENT

DRUGS (5)
  1. GOSERELIN [Suspect]
     Active Substance: GOSERELIN
     Indication: Breast cancer metastatic
     Dosage: FOLLOWED BY QUARTERLY (10.8 MG)10.8MG UNKNOWN
     Route: 065
     Dates: end: 2018
  2. GOSERELIN [Suspect]
     Active Substance: GOSERELIN
     Dosage: 3.6 MG MONTHLY X 3 MONTHS FOLLOWED BY QUARTERLY (10.8 MG)3.6MG UNKNOWN
     Route: 065
  3. ZOLADEX [Suspect]
     Active Substance: GOSERELIN ACETATE
     Indication: Breast cancer metastatic
     Dosage: UNK
     Route: 065
  4. LETROZOLE [Suspect]
     Active Substance: LETROZOLE
     Indication: Breast cancer metastatic
     Dosage: 2.5 MG, QD
     Route: 065
  5. PALBOCICLIB [Suspect]
     Active Substance: PALBOCICLIB
     Indication: Breast cancer metastatic
     Dosage: FOR 3 WEEKS AND A WEEK OF REST125.0MG EVERY CYCLE
     Route: 065

REACTIONS (3)
  - Neutropenia [Recovered/Resolved]
  - Flushing [Unknown]
  - Arthralgia [Recovering/Resolving]
